FAERS Safety Report 15980556 (Version 4)
Quarter: 2021Q4

REPORT INFORMATION
  Report Type: Report from Study
  Country: GB (occurrence: GB)
  Receive Date: 20190219
  Receipt Date: 20211216
  Transmission Date: 20220303
  Serious: Yes (Other)
  Sender: FDA-Public Use
  Company Number: GB-ROCHE-1731053

PATIENT
  Age: 67 Year
  Sex: Female

DRUGS (17)
  1. DOCETAXEL [Suspect]
     Active Substance: DOCETAXEL
     Indication: Breast cancer metastatic
     Dosage: 130 MG, EVERY 3 WEEKS
     Route: 042
     Dates: start: 20151013, end: 20151013
  2. PACLITAXEL [Suspect]
     Active Substance: PACLITAXEL
     Indication: Breast cancer metastatic
     Dosage: 140 MG, UNK
     Route: 042
     Dates: start: 20151125, end: 20160302
  3. PERTUZUMAB [Suspect]
     Active Substance: PERTUZUMAB
     Indication: Breast cancer metastatic
     Dosage: 840 MG, UNK (LOADING DOSE)
     Route: 042
     Dates: start: 20151012
  4. PERTUZUMAB [Suspect]
     Active Substance: PERTUZUMAB
     Indication: Breast cancer metastatic
     Dosage: 420 MG, EVERY 3 WEEKS (MAINTENANCE DOSE,MOST RECENT DOSE PRIOR TO SAE
     Route: 042
     Dates: start: 20151102
  5. PERTUZUMAB [Suspect]
     Active Substance: PERTUZUMAB
     Dosage: 840 MILLIGRAM, LOADING DOSE
     Route: 042
     Dates: start: 20151012
  6. TRASTUZUMAB [Suspect]
     Active Substance: TRASTUZUMAB
     Indication: Breast cancer metastatic
     Dosage: 620 MG, UNK (LOADING DOSE MOST RECENT DOSE PRIOR TO SAE)
     Route: 041
     Dates: start: 20151012
  7. TRASTUZUMAB [Suspect]
     Active Substance: TRASTUZUMAB
     Dosage: 6 MG/KG, EVERY 3 WEEKS (MAINTENANCE DOSE)
     Route: 042
     Dates: start: 20151102
  8. CALCIUM CARBONATE\CHOLECALCIFEROL [Concomitant]
     Active Substance: CALCIUM CARBONATE\CHOLECALCIFEROL
     Indication: Vitamin D deficiency
     Dosage: 1.5 G, UNK (GIVEN FOR THE PREVENTION OF VITAMIN D DEFICIENCY)
     Route: 048
     Dates: start: 20101007
  9. ALENDRONIC ACID [Concomitant]
     Active Substance: ALENDRONIC ACID
     Indication: Osteoporosis
     Dosage: 70 MG, WEEKLY
     Route: 065
     Dates: start: 20160821, end: 201611
  10. CYCLIZINE [Concomitant]
     Active Substance: CYCLIZINE
  11. CHOLECALCIFEROL [Concomitant]
     Active Substance: CHOLECALCIFEROL
     Indication: Osteoporosis
     Dosage: 800 IU, 1X/DAY
     Route: 048
     Dates: start: 20160821, end: 201611
  12. CHOLECALCIFEROL [Concomitant]
     Active Substance: CHOLECALCIFEROL
     Dosage: 1 UNK, 1X/DAY
     Route: 048
     Dates: start: 20170203
  13. DEXAMETHASONE [Concomitant]
     Active Substance: DEXAMETHASONE
  14. LOPERAMIDE HYDROCHLORIDE [Concomitant]
     Active Substance: LOPERAMIDE HYDROCHLORIDE
     Dosage: 2 MG, UNK
     Route: 048
     Dates: start: 20151015
  15. ACETAMINOPHEN [Concomitant]
     Active Substance: ACETAMINOPHEN
     Indication: Premedication
     Dosage: 500 MG, UNK (PRE MEDICATION)
     Route: 048
     Dates: start: 20151012
  16. RISEDRONATE SODIUM [Concomitant]
     Active Substance: RISEDRONATE SODIUM
     Indication: Osteoporosis postmenopausal
     Dosage: 35 G (GIVEN FOR THE PREVENTION OSTEOPOROSIS IN POSTMENOPAUSAL WOMEN)
     Route: 048
     Dates: start: 20101007, end: 20160807
  17. ZOLEDRONIC ACID [Concomitant]
     Active Substance: ZOLEDRONIC ACID
     Indication: Osteoporosis
     Dosage: 5 MG, EVERY 6 MINUTE
     Route: 042
     Dates: start: 20170203

REACTIONS (9)
  - Lower respiratory tract infection [Recovered/Resolved]
  - Neuropathy peripheral [Recovered/Resolved]
  - Lower respiratory tract infection [Recovered/Resolved]
  - Urticaria [Recovered/Resolved]
  - Rib fracture [Recovered/Resolved]
  - Musculoskeletal chest pain [Not Recovered/Not Resolved]
  - Mouth ulceration [Recovered/Resolved]
  - Urinary tract infection [Recovered/Resolved]
  - Mouth ulceration [Recovered/Resolved]

NARRATIVE: CASE EVENT DATE: 20151021
